FAERS Safety Report 7108321-9 (Version None)
Quarter: 2010Q4

REPORT INFORMATION
  Report Type: 
  Country: None (occurrence: None)
  Receive Date: 20101117
  Receipt Date: 20101109
  Transmission Date: 20110411
  Serious: Yes (Other)
  Sender: FDA-Public Use
  Company Number: US-ROCHE-695676

PATIENT
  Sex: Female

DRUGS (16)
  1. PEGASYS [Suspect]
     Indication: HEPATITIS C
     Dosage: TRIAL TREATMENT, FORM:PREFILLED SYRINGE
     Route: 058
     Dates: start: 20100316, end: 20100330
  2. COPEGUS [Suspect]
     Indication: HEPATITIS C
     Dosage: FREQUENCY: DAILY IN DIVIDED DOSES
     Route: 065
     Dates: start: 20100316, end: 20100330
  3. ALLOPURINOL [Concomitant]
     Route: 048
  4. AMBIEN [Concomitant]
     Dosage: TAKEN AT BEDTIME
  5. ATARAX [Concomitant]
     Dosage: TAKEN AS NEEDED
     Route: 048
  6. DIAZEPAM [Concomitant]
  7. DONNATAL [Concomitant]
     Dosage: STRENGTH:16.3296MG
     Route: 048
  8. FLEXERIL [Concomitant]
  9. MIRALAX [Concomitant]
  10. NEURONTIN [Concomitant]
     Route: 048
  11. PEPCID [Concomitant]
     Dosage: 10 MG/ML SOLUTION; 1 DAILY
  12. PHENERGAN [Concomitant]
     Indication: NAUSEA
     Route: 048
  13. SPIRONOLACTONE [Concomitant]
  14. TRAZODONE HYDROCHLORIDE [Concomitant]
     Dosage: AT BEDTIME
  15. VERAPAMIL HYDROCHLORIDE [Concomitant]
     Route: 048
  16. VISTARIL [Concomitant]

REACTIONS (19)
  - ABDOMINAL DISTENSION [None]
  - ABDOMINAL PAIN [None]
  - ANXIETY [None]
  - BLISTER [None]
  - CONTUSION [None]
  - DIARRHOEA [None]
  - DRY EYE [None]
  - DYSPNOEA [None]
  - EYE DISORDER [None]
  - EYE IRRITATION [None]
  - HEADACHE [None]
  - NAUSEA [None]
  - PALPITATIONS [None]
  - RASH [None]
  - RASH VESICULAR [None]
  - SKIN REACTION [None]
  - STOMATITIS [None]
  - SUNBURN [None]
  - VULVOVAGINAL BURNING SENSATION [None]
